FAERS Safety Report 15846980 (Version 3)
Quarter: 2020Q1

REPORT INFORMATION
  Report Type: Report from Study
  Country: US (occurrence: US)
  Receive Date: 20190121
  Receipt Date: 20200113
  Transmission Date: 20200409
  Serious: Yes (Other)
  Sender: FDA-Public Use
  Company Number: US-SA-2015SA063452

PATIENT
  Age: 11 Year
  Sex: Male

DRUGS (3)
  1. IMIGLUCERASE [Suspect]
     Active Substance: IMIGLUCERASE
     Dosage: 4800.00; QW
     Route: 041
  2. IMIGLUCERASE [Suspect]
     Active Substance: IMIGLUCERASE
     Indication: GAUCHER^S DISEASE
     Dosage: 3200 MG, Q1
     Route: 041
     Dates: start: 200511, end: 20150507
  3. IMIGLUCERASE [Suspect]
     Active Substance: IMIGLUCERASE
     Dosage: 4800.00; QW
     Route: 041
     Dates: start: 20080901

REACTIONS (5)
  - Magnetic resonance imaging abnormal [Unknown]
  - Malaise [Unknown]
  - Dyspnoea [Unknown]
  - Interstitial lung disease [Unknown]
  - Vascular device user [Unknown]
